FAERS Safety Report 21656570 (Version 1)
Quarter: 2022Q4

REPORT INFORMATION
  Report Type: Other
  Country: CA (occurrence: None)
  Receive Date: 20221129
  Receipt Date: 20221129
  Transmission Date: 20230113
  Serious: Yes (Death)
  Sender: FDA-Public Use
  Company Number: CA-ROCHE-3224871

PATIENT
  Age: 79 Year
  Sex: Female

DRUGS (3)
  1. MYCOPHENOLATE MOFETIL [Suspect]
     Active Substance: MYCOPHENOLATE MOFETIL
     Indication: Systemic lupus erythematosus
     Route: 065
  2. PREDNISONE [Suspect]
     Active Substance: PREDNISONE
     Indication: Systemic lupus erythematosus
     Route: 065
  3. HYDRALAZINE [Concomitant]
     Active Substance: HYDRALAZINE HYDROCHLORIDE

REACTIONS (1)
  - Infection [Fatal]
